FAERS Safety Report 24922836 (Version 1)
Quarter: 2025Q1

REPORT INFORMATION
  Report Type: Spontaneous
  Country: LV (occurrence: LV)
  Receive Date: 20250204
  Receipt Date: 20250204
  Transmission Date: 20250409
  Serious: Yes (Hospitalization)
  Sender: FRESENIUS KABI
  Company Number: None

PATIENT
  Age: 40 Year
  Sex: Female
  Weight: 71 kg

DRUGS (2)
  1. TYENNE [Suspect]
     Active Substance: TOCILIZUMAB-AAZG
     Indication: Rheumatoid arthritis
     Route: 042
     Dates: start: 20250110, end: 20250110
  2. L-Thyroxin Berlin-Chemie 100 microgram tablets [Concomitant]
     Indication: Hypothyroidism
     Route: 048
     Dates: start: 20100208

REACTIONS (7)
  - Urticaria [Unknown]
  - Swelling face [Unknown]
  - Ear discomfort [Unknown]
  - Cyanosis [Unknown]
  - Chills [Unknown]
  - Disorientation [Unknown]
  - Palpitations [Unknown]

NARRATIVE: CASE EVENT DATE: 20250110
